FAERS Safety Report 16178090 (Version 2)
Quarter: 2019Q2

REPORT INFORMATION
  Report Type: Spontaneous
  Country: CO (occurrence: CO)
  Receive Date: 20190410
  Receipt Date: 20190416
  Transmission Date: 20190711
  Serious: No
  Sender: FDA-Public Use
  Company Number: CO-ABBVIE-19P-036-2737260-00

PATIENT
  Age: 14 Year
  Sex: Male
  Weight: 50 kg

DRUGS (2)
  1. NITAX [Concomitant]
     Indication: INFECTION PARASITIC
     Route: 048
     Dates: start: 201809, end: 201809
  2. VALCOTE [Suspect]
     Active Substance: VALPROATE SODIUM
     Indication: SEIZURE
     Route: 048
     Dates: start: 201701

REACTIONS (3)
  - Syncope [Recovered/Resolved]
  - Skin discolouration [Not Recovered/Not Resolved]
  - Fungal infection [Not Recovered/Not Resolved]

NARRATIVE: CASE EVENT DATE: 201701
